FAERS Safety Report 5323661-1 (Version None)
Quarter: 2007Q2

REPORT INFORMATION
  Report Type: 
  Country: None (occurrence: None)
  Receive Date: 20070511
  Receipt Date: 20070511
  Transmission Date: 20071010
  Serious: Yes (Other)
  Sender: FDA-Public Use
  Company Number: None

PATIENT
  Age: 60 Year
  Sex: Male
  Weight: 108.8633 kg

DRUGS (1)
  1. VYTORIN [Suspect]
     Indication: DYSLIPIDAEMIA
     Dosage: ONCE QD  UNCLEAR - 90 DAY SUPPLY NOT REFILLED
     Dates: start: 20060512

REACTIONS (2)
  - NAUSEA [None]
  - VOMITING [None]
